FAERS Safety Report 19605687 (Version 2)
Quarter: 2022Q1

REPORT INFORMATION
  Report Type: Report from Study
  Country: PE (occurrence: PE)
  Receive Date: 20210723
  Receipt Date: 20220331
  Transmission Date: 20220423
  Serious: Yes (Hospitalization, Other)
  Sender: FDA-Public Use
  Company Number: PE-009507513-2104PER001767

PATIENT
  Age: 57 Year
  Sex: Male

DRUGS (7)
  1. JANUMET [Suspect]
     Active Substance: METFORMIN HYDROCHLORIDE\SITAGLIPTIN PHOSPHATE
     Indication: Diabetes mellitus
     Dosage: 1 TABLET DAILY
     Route: 048
     Dates: start: 201604, end: 201804
  2. JANUMET [Suspect]
     Active Substance: METFORMIN HYDROCHLORIDE\SITAGLIPTIN PHOSPHATE
     Dosage: 1 UNIT, IN THE MORNINGS AND IN THE NIGHTS
     Route: 048
     Dates: start: 201804
  3. JANUMET [Suspect]
     Active Substance: METFORMIN HYDROCHLORIDE\SITAGLIPTIN PHOSPHATE
     Indication: Diabetes mellitus
     Dosage: 1 TABLET DAILY
     Route: 048
     Dates: start: 201804, end: 202010
  4. JANUMET [Suspect]
     Active Substance: METFORMIN HYDROCHLORIDE\SITAGLIPTIN PHOSPHATE
     Dosage: 1 UNIT AT MORNINGS, 1 UNIT AT NIGHTS.
     Route: 048
     Dates: start: 202010, end: 20211213
  5. JANUMET [Suspect]
     Active Substance: METFORMIN HYDROCHLORIDE\SITAGLIPTIN PHOSPHATE
     Indication: Diabetes mellitus
     Dosage: 50/1000 MG, 1 TABLET DAILY
     Route: 048
     Dates: start: 20211213
  6. LOSARTAN [Concomitant]
     Active Substance: LOSARTAN
     Indication: Hypertension
     Dosage: STRENGTH: 50MG, 1 UNIT AFTER LUNCH, PER ORAL
     Route: 048
     Dates: start: 2015, end: 201811
  7. CANDESARTAN [Concomitant]
     Active Substance: CANDESARTAN
     Indication: Hypertension
     Dosage: HALF UNIT IN THE MORNINGS, HALF UNITS AT NIGHTS, ONGOING. STRENGTH: 32 MG.
     Dates: start: 201811

REACTIONS (22)
  - Angina unstable [Unknown]
  - Vascular graft [Recovered/Resolved]
  - Drug ineffective [Unknown]
  - COVID-19 [Recovered/Resolved with Sequelae]
  - Blood glucose increased [Recovered/Resolved]
  - Abdominal discomfort [Unknown]
  - Gastrooesophageal reflux disease [Recovered/Resolved]
  - Tonsillar inflammation [Recovered/Resolved]
  - Bronchial disorder [Recovered/Resolved]
  - Nasal congestion [Recovered/Resolved]
  - Feeding disorder [Recovered/Resolved]
  - Blood glucose increased [Recovered/Resolved]
  - Renal pain [Recovered/Resolved]
  - Blood triglycerides increased [Unknown]
  - Blood cholesterol increased [Unknown]
  - Blood glucose increased [Recovered/Resolved]
  - Blood glucose fluctuation [Unknown]
  - Discomfort [Unknown]
  - Product prescribing issue [Unknown]
  - Incorrect dose administered [Unknown]
  - Incorrect dose administered [Unknown]
  - Incorrect dose administered [Unknown]

NARRATIVE: CASE EVENT DATE: 20160401
